FAERS Safety Report 6269809-6 (Version None)
Quarter: 2009Q3

REPORT INFORMATION
  Report Type: 
  Country: None (occurrence: None)
  Receive Date: 20090716
  Receipt Date: 20090707
  Transmission Date: 20100115
  Serious: Yes (Death, Hospitalization)
  Sender: FDA-Public Use
  Company Number: HOAFF40357

PATIENT
  Age: 43 Year
  Sex: Female

DRUGS (1)
  1. KETOCONAZOLE [Suspect]
     Indication: ONYCHOMYCOSIS
     Route: 048
     Dates: end: 19870806

REACTIONS (2)
  - HEPATIC FAILURE [None]
  - HEPATITIS FULMINANT [None]
